FAERS Safety Report 4341506-3 (Version None)
Quarter: 2004Q2

REPORT INFORMATION
  Report Type: 
  Country: None (occurrence: None)
  Receive Date: 20040415
  Receipt Date: 20040330
  Transmission Date: 20050107
  Serious: No
  Sender: FDA-Public Use
  Company Number: 193571

PATIENT
  Sex: Female

DRUGS (4)
  1. AVONEX [Suspect]
     Indication: MULTIPLE SCLEROSIS
     Dosage: 30 MCG QW IM
     Dates: start: 20030701
  2. EFFEXOR [Concomitant]
  3. BACLOFEN [Concomitant]
  4. GABAPENTIN [Concomitant]

REACTIONS (9)
  - AMENORRHOEA [None]
  - BRAIN OEDEMA [None]
  - HEADACHE [None]
  - MENORRHAGIA [None]
  - METRORRHAGIA [None]
  - NAUSEA [None]
  - VARICOSE VEIN [None]
  - VOMITING [None]
  - WEIGHT INCREASED [None]
